FAERS Safety Report 10436991 (Version 1)
Quarter: 2014Q3

REPORT INFORMATION
  Report Type: Spontaneous
  Country: US (occurrence: US)
  Receive Date: 20140908
  Receipt Date: 20140908
  Transmission Date: 20150326
  Serious: No
  Sender: FDA-Public Use
  Company Number: US-BRISTOL-MYERS SQUIBB COMPANY-20826004

PATIENT
  Age: 51 Year
  Sex: Female
  Weight: 81.63 kg

DRUGS (1)
  1. ABILIFY [Suspect]
     Active Substance: ARIPIPRAZOLE
     Dosage: A 5MG TABLET AND SPLITTING ANOTHER 5 MG TABLETS IN HALF TO MAKE IT 7.5MG DOSE

REACTIONS (1)
  - Wrong technique in drug usage process [Unknown]
